FAERS Safety Report 18071258 (Version 1)
Quarter: 2020Q3

REPORT INFORMATION
  Report Type: Spontaneous
  Country: US (occurrence: US)
  Receive Date: 20200725
  Receipt Date: 20200725
  Transmission Date: 20201103
  Serious: Yes (Other)
  Sender: FDA-Public Use
  Company Number: None

PATIENT
  Age: 38 Year
  Sex: Female
  Weight: 49.5 kg

DRUGS (1)
  1. SOLIMO HAND SANITIZER [Suspect]
     Active Substance: ALCOHOL
     Indication: COVID-19 PROPHYLAXIS
     Dosage: ?          QUANTITY:8 OUNCE(S);?
     Dates: start: 20200501, end: 20200701

REACTIONS (5)
  - Alcohol poisoning [None]
  - Nausea [None]
  - Vomiting [None]
  - Migraine [None]
  - Headache [None]

NARRATIVE: CASE EVENT DATE: 20200501
